FAERS Safety Report 8787948 (Version 1)
Quarter: 2012Q4

REPORT INFORMATION
  Report Type: 
  Country: None (occurrence: None)
  Receive Date: 20120914
  Receipt Date: 20120914
  Transmission Date: 20130627
  Serious: Yes (Death)
  Sender: FDA-Public Use
  Company Number: RS-ROCHE-1113445

PATIENT

DRUGS (8)
  1. XELODA [Suspect]
     Indication: BREAST CANCER METASTATIC
     Route: 065
  2. RADIOTHERAPY [Concomitant]
  3. NOLVADEX [Concomitant]
  4. FLUOROURACIL [Concomitant]
  5. ADRIAMYCIN [Concomitant]
  6. CYCLOPHOSPHAMIDE [Concomitant]
  7. FEMARA [Concomitant]
  8. METHOTREXATE NOS [Concomitant]

REACTIONS (1)
  - Death [Fatal]
